FAERS Safety Report 5264844-9 (Version None)
Quarter: 2007Q1

REPORT INFORMATION
  Report Type: 
  Country: None (occurrence: None)
  Receive Date: 20061117
  Receipt Date: 20060808
  Transmission Date: 20070707
  Serious: Yes (Other)
  Sender: FDA-Public Use
  Company Number: US-JNJFOC-20060802382

PATIENT
  Age: 7 Decade
  Sex: Female

DRUGS (1)
  1. LEVAQUIN [Suspect]
     Dosage: 1 IN 1 DAY, ORAL
     Route: 048
     Dates: start: 20060701, end: 20060701

REACTIONS (1)
  - TENDON RUPTURE [None]
